FAERS Safety Report 23056219 (Version 4)
Quarter: 2023Q4

REPORT INFORMATION
  Report Type: Report from Study
  Country: US (occurrence: US)
  Receive Date: 20231011
  Receipt Date: 20231130
  Transmission Date: 20240109
  Serious: No
  Sender: FDA-Public Use
  Company Number: US-ABBVIE-5445577

PATIENT
  Age: 79 Year
  Sex: Female

DRUGS (4)
  1. SKYRIZI [Suspect]
     Active Substance: RISANKIZUMAB-RZAA
     Indication: Crohn^s disease
     Route: 058
  2. SKYRIZI [Suspect]
     Active Substance: RISANKIZUMAB-RZAA
     Indication: Crohn^s disease
     Route: 042
  3. IRON [Suspect]
     Active Substance: IRON
     Indication: Blood iron decreased
     Route: 065
     Dates: start: 20231002
  4. IRON [Suspect]
     Active Substance: IRON
     Indication: Blood iron decreased
     Dosage: END DATE 2023
     Route: 065
     Dates: start: 20230925

REACTIONS (4)
  - Blood iron decreased [Unknown]
  - Therapeutic product effect variable [Recovered/Resolved]
  - Skin discolouration [Not Recovered/Not Resolved]
  - Erythema [Not Recovered/Not Resolved]

NARRATIVE: CASE EVENT DATE: 20230901
